FAERS Safety Report 23139739 (Version 1)
Quarter: 2023Q4

REPORT INFORMATION
  Report Type: Spontaneous
  Country: US (occurrence: US)
  Receive Date: 20231102
  Receipt Date: 20231102
  Transmission Date: 20240109
  Serious: Yes (Other)
  Sender: FDA-Public Use
  Company Number: US-SCA PHARMACEUTICALS-2023SCA00008

PATIENT
  Sex: Female

DRUGS (2)
  1. BUPIVACAINE\FENTANYL [Suspect]
     Active Substance: BUPIVACAINE\FENTANYL
     Indication: Labour pain
     Dosage: NORMAL DOSING RATE (PUMP BOLUS 9, RATE 9, NO EXTRA LOCAL FROM OUTSIDE THE KIT)
     Route: 008
     Dates: start: 202307, end: 202307
  2. BUPIVACAINE\FENTANYL [Suspect]
     Active Substance: BUPIVACAINE\FENTANYL
     Dosage: 6ML/HR
     Route: 008
     Dates: start: 202307, end: 202307

REACTIONS (2)
  - Hypoaesthesia [Unknown]
  - Hypotension [Unknown]

NARRATIVE: CASE EVENT DATE: 20230701
